FAERS Safety Report 6498055-6 (Version None)
Quarter: 2009Q4

REPORT INFORMATION
  Report Type: 
  Country: None (occurrence: None)
  Receive Date: 20091215
  Receipt Date: 20091208
  Transmission Date: 20100525
  Serious: Yes (Hospitalization, Other)
  Sender: FDA-Public Use
  Company Number: PHHY2009US54444

PATIENT
  Sex: Male

DRUGS (1)
  1. EXJADE [Suspect]
     Dosage: 1000 UNK / DAY
     Route: 048
     Dates: end: 20090112

REACTIONS (2)
  - MECHANICAL VENTILATION [None]
  - NEPHROLITHIASIS [None]
